FAERS Safety Report 9218237 (Version 1)
Quarter: 2013Q2

REPORT INFORMATION
  Report Type: Spontaneous
  Country: US (occurrence: US)
  Receive Date: 20130408
  Receipt Date: 20130408
  Transmission Date: 20140414
  Serious: No
  Sender: FDA-Public Use
  Company Number: US-009507513-1303USA014116

PATIENT
  Age: 10 Year
  Sex: Female

DRUGS (2)
  1. DULERA [Suspect]
     Indication: ASTHMA
     Dosage: 2 DF, BID
     Route: 055
     Dates: end: 20130313
  2. FLUTICASONE [Concomitant]

REACTIONS (3)
  - Delirium [Unknown]
  - Drug administered to patient of inappropriate age [Unknown]
  - Off label use [Unknown]
